FAERS Safety Report 6648747-0 (Version None)
Quarter: 2010Q1

REPORT INFORMATION
  Report Type: 
  Country: None (occurrence: None)
  Receive Date: 20100324
  Receipt Date: 20100312
  Transmission Date: 20100710
  Serious: Yes (Hospitalization)
  Sender: FDA-Public Use
  Company Number: JP-PFIZER INC-2010034944

PATIENT
  Age: 74 Year
  Sex: Female

DRUGS (17)
  1. CELECOXIB [Suspect]
     Indication: RHEUMATOID ARTHRITIS
     Dosage: 200 MG, 1X/DAY
     Route: 048
     Dates: start: 20080207, end: 20081202
  2. MIKAMETAN [Suspect]
     Dosage: 25 MG, 1X/DAY
     Route: 054
     Dates: start: 20080207, end: 20081029
  3. OMEPRAZOLE [Concomitant]
     Dosage: UNK
     Route: 048
     Dates: start: 20080207, end: 20081202
  4. ASPIRIN [Concomitant]
     Dosage: UNK
     Route: 048
     Dates: start: 20080207, end: 20081202
  5. CONIEL [Concomitant]
     Dosage: UNK
     Route: 048
     Dates: start: 20080207, end: 20081202
  6. FLUVASTATIN [Concomitant]
     Dosage: UNK
     Route: 048
     Dates: start: 20080207, end: 20081202
  7. VALSARTAN [Concomitant]
     Dosage: UNK
     Route: 048
     Dates: start: 20080207, end: 20081202
  8. CLARUTE [Concomitant]
     Dosage: UNK
     Route: 048
     Dates: start: 20080207, end: 20081202
  9. SELBEX [Concomitant]
     Dosage: UNK
     Route: 048
     Dates: start: 20080207, end: 20081202
  10. ALFACALCIDOL [Concomitant]
     Dosage: UNK
     Route: 048
     Dates: start: 20080207, end: 20081202
  11. RISEDRONATE SODIUM [Concomitant]
     Dosage: UNK
     Route: 048
     Dates: start: 20080207, end: 20081202
  12. URINORM [Concomitant]
     Dosage: UNK
     Route: 048
     Dates: start: 20080207, end: 20081202
  13. PREDNISOLONE [Concomitant]
     Dosage: UNK
     Route: 048
     Dates: start: 20080207, end: 20081202
  14. CLINORIL [Concomitant]
     Dosage: UNK
     Route: 048
     Dates: start: 20080207, end: 20081202
  15. SENNARIDE [Concomitant]
     Dosage: UNK
     Route: 048
     Dates: start: 20080207, end: 20081202
  16. TORASEMIDE [Concomitant]
     Dosage: UNK
     Route: 048
     Dates: start: 20080207, end: 20081202
  17. ISOSORBIDE DINITRATE [Concomitant]
     Dosage: UNK
     Dates: start: 20080207, end: 20081202

REACTIONS (1)
  - PYLORIC STENOSIS [None]
